FAERS Safety Report 17306876 (Version 1)
Quarter: 2020Q1

REPORT INFORMATION
  Report Type: Spontaneous
  Country: US (occurrence: US)
  Receive Date: 20200123
  Receipt Date: 20200123
  Transmission Date: 20200409
  Serious: No
  Sender: FDA-Public Use
  Company Number: US-DERMIRA, INC.-US-2019DER000577

PATIENT
  Age: 23 Year
  Sex: Male
  Weight: 74.83 kg

DRUGS (1)
  1. QBREXZA [Suspect]
     Active Substance: GLYCOPYRRONIUM TOSYLATE
     Indication: HYPERHIDROSIS
     Dosage: UNK, QD
     Route: 061
     Dates: start: 201912, end: 20191214

REACTIONS (15)
  - Eating disorder [Recovered/Resolved]
  - Intentional product misuse [Unknown]
  - Off label use [Unknown]
  - Presyncope [Recovered/Resolved]
  - Flushing [Unknown]
  - Abdominal distension [Not Recovered/Not Resolved]
  - Anhidrosis [Unknown]
  - Feeling hot [Unknown]
  - Taste disorder [Recovered/Resolved]
  - Dizziness [Recovered/Resolved]
  - Dry mouth [Recovered/Resolved]
  - Dysuria [Not Recovered/Not Resolved]
  - Dry throat [Recovered/Resolved]
  - Tinnitus [Recovered/Resolved]
  - Dysphagia [Recovered/Resolved]

NARRATIVE: CASE EVENT DATE: 201912
